FAERS Safety Report 12342724 (Version 1)
Quarter: 2016Q2

REPORT INFORMATION
  Report Type: Report from Study
  Country: US (occurrence: US)
  Receive Date: 20160506
  Receipt Date: 20160506
  Transmission Date: 20160815
  Serious: Yes (Other)
  Sender: FDA-Public Use
  Company Number: US-ABBVIE-16K-163-1617407-00

PATIENT
  Age: 55 Year
  Sex: Female

DRUGS (1)
  1. HUMIRA [Suspect]
     Active Substance: ADALIMUMAB
     Indication: RHEUMATOID ARTHRITIS
     Route: 058
     Dates: start: 201510, end: 201603

REACTIONS (6)
  - Rhinitis [Unknown]
  - Eye infection [Unknown]
  - Sinusitis [Unknown]
  - Deafness [Unknown]
  - Abscess [Unknown]
  - Ear infection [Unknown]

NARRATIVE: CASE EVENT DATE: 2016
